FAERS Safety Report 13540563 (Version 2)
Quarter: 2017Q2

REPORT INFORMATION
  Report Type: Spontaneous
  Country: FR (occurrence: FR)
  Receive Date: 20170512
  Receipt Date: 20170519
  Transmission Date: 20170830
  Serious: Yes (Death)
  Sender: FDA-Public Use
  Company Number: FR-PFIZER INC-2017204662

PATIENT
  Age: 83 Year
  Sex: Male

DRUGS (5)
  1. TRAMADOL HYDROCHLORIDE. [Suspect]
     Active Substance: TRAMADOL HYDROCHLORIDE
     Indication: BACK PAIN
     Dosage: 50 MG, 2X/DAY
     Route: 048
     Dates: start: 20170422
  2. TEMERIT DUO [Concomitant]
     Active Substance: HYDROCHLOROTHIAZIDE\NEBIVOLOL HYDROCHLORIDE
     Dosage: 1 DF, DAILY
  3. FRAGMINE [Suspect]
     Active Substance: DALTEPARIN SODIUM
     Dosage: 5000 IU, 1X/DAY
     Route: 058
     Dates: start: 20170422, end: 20170423
  4. ELIQUIS [Suspect]
     Active Substance: APIXABAN
     Indication: ATRIAL FIBRILLATION
     Dosage: 2.5 MG, 2X/DAY
     Route: 048
     Dates: end: 20170423
  5. PANTOPRAZOLE SODIUM. [Suspect]
     Active Substance: PANTOPRAZOLE SODIUM
     Dosage: 40 MG, 1X/DAY
     Route: 048
     Dates: start: 20170422

REACTIONS (1)
  - Cerebral haemorrhage [Fatal]

NARRATIVE: CASE EVENT DATE: 20170424
